FAERS Safety Report 4837159-8 (Version None)
Quarter: 2005Q4

REPORT INFORMATION
  Report Type: 
  Country: None (occurrence: None)
  Receive Date: 20051122
  Receipt Date: 20051109
  Transmission Date: 20060501
  Serious: Yes (Other)
  Sender: FDA-Public Use
  Company Number: 2005154296

PATIENT
  Sex: Female
  Weight: 69.8539 kg

DRUGS (8)
  1. NEURONTIN [Suspect]
     Indication: OSTEOARTHRITIS
     Dosage: 400 MG (400 MG, 1 IN 1 D),
     Dates: start: 20030101, end: 20051108
  2. LYRICA [Suspect]
     Indication: OSTEOARTHRITIS
     Dosage: 150 MG (75 MG, 2 IN 1 D),
     Dates: start: 20051108
  3. HYZAAR [Concomitant]
  4. SYNTHROID [Concomitant]
  5. ROCALTROL [Concomitant]
  6. OSCAL 500-D (CALCIUM, COLECALCIFEROL) [Concomitant]
  7. PRAVACHOL [Concomitant]
  8. ALL OTHER THERAPEUTIC PRODUCTS (ALL OTHER THERAPEUTIC PRODUCTS) [Concomitant]

REACTIONS (8)
  - ABASIA [None]
  - ANXIETY [None]
  - BACK PAIN [None]
  - DRY MOUTH [None]
  - FLUID RETENTION [None]
  - INSOMNIA [None]
  - MEDICAL DEVICE IMPLANTATION [None]
  - OEDEMA PERIPHERAL [None]
